FAERS Safety Report 21720357 (Version 1)
Quarter: 2022Q4

REPORT INFORMATION
  Report Type: Spontaneous
  Country: US (occurrence: US)
  Receive Date: 20221213
  Receipt Date: 20221213
  Transmission Date: 20230113
  Serious: No
  Sender: FDA-Public Use
  Company Number: US-AUROBINDO-AUR-APL-2022-035798

PATIENT
  Sex: Female

DRUGS (2)
  1. ATENOLOL [Suspect]
     Active Substance: ATENOLOL
     Indication: Hypertension
     Dosage: UNK
     Route: 065
     Dates: start: 202203
  2. LOSARTAN POTASSIUM [Suspect]
     Active Substance: LOSARTAN POTASSIUM
     Indication: Hypertension
     Dosage: UNK, 1.5 TABLETS A DAY (HALF IN THE MORNING AND WHOLE IN THE NIGHT)
     Route: 065
     Dates: start: 202203

REACTIONS (3)
  - Dizziness [Recovered/Resolved]
  - Psoriasis [Unknown]
  - Rash macular [Unknown]

NARRATIVE: CASE EVENT DATE: 20220301
